FAERS Safety Report 20105487 (Version 1)
Quarter: 2021Q4

REPORT INFORMATION
  Report Type: Spontaneous
  Country: US (occurrence: US)
  Receive Date: 20211124
  Receipt Date: 20211124
  Transmission Date: 20220303
  Serious: No
  Sender: FDA-Public Use
  Company Number: US-AMGEN-USASP2021179354

PATIENT
  Age: 74 Year
  Sex: Female

DRUGS (1)
  1. PROLIA [Suspect]
     Active Substance: DENOSUMAB
     Indication: Product used for unknown indication
     Dosage: UNK
     Route: 065
     Dates: start: 2018

REACTIONS (5)
  - Stress [Unknown]
  - Dental restoration failure [Unknown]
  - Gingival pain [Recovered/Resolved]
  - Secretion discharge [Not Recovered/Not Resolved]
  - Pulpitis dental [Not Recovered/Not Resolved]

NARRATIVE: CASE EVENT DATE: 20200101
